FAERS Safety Report 14391070 (Version 3)
Quarter: 2018Q1

REPORT INFORMATION
  Report Type: Spontaneous
  Country: US (occurrence: US)
  Receive Date: 20180116
  Receipt Date: 20180222
  Transmission Date: 20180509
  Serious: No
  Sender: FDA-Public Use
  Company Number: US-PFIZER INC-2018015880

PATIENT
  Age: 79 Year
  Sex: Female

DRUGS (14)
  1. DORZOLAMIDE [Concomitant]
     Active Substance: DORZOLAMIDE
     Indication: GLAUCOMA
     Dosage: 1 GTT, 2X/DAY(1 DROP TWICE DAILY IN HER RIGHT EYE)
     Route: 047
  2. PROAIR HFA [Concomitant]
     Active Substance: ALBUTEROL SULFATE
     Dosage: 8.5 UG, AS NEEDED
  3. LYRICA [Suspect]
     Active Substance: PREGABALIN
     Indication: PAIN
  4. SYMBICORT [Concomitant]
     Active Substance: BUDESONIDE\FORMOTEROL FUMARATE DIHYDRATE
     Indication: DYSPNOEA
     Dosage: UNK, 1X/DAY,(2 INHALATIONS DAILY BEFORE BEDTIME)UNK [BUDESONIDE-160]\[FORMOTEROL FUMARATE-4.5]
     Route: 055
  5. LYRICA [Suspect]
     Active Substance: PREGABALIN
     Indication: PAIN IN EXTREMITY
     Dosage: 75 MG, 1X/DAY, (1-3 HOURS BEFORE BEDTIME)/1-75 MG CAPSULE AT BED TIME
     Dates: start: 20180108
  6. LYRICA [Suspect]
     Active Substance: PREGABALIN
     Indication: BACK PAIN
  7. ALPHAGAN P [Concomitant]
     Active Substance: BRIMONIDINE TARTRATE
     Dosage: UNK
  8. DORZOLAMIDE TIMOLOL [Concomitant]
     Active Substance: DORZOLAMIDE
     Dosage: UNK
  9. HYDROCODONE/ACETAMINOPHEN [Concomitant]
     Active Substance: ACETAMINOPHEN\HYDROCODONE
     Dosage: UNK [HYDROCODONE-7.5]/[ACETAMINOPHEN-325]
  10. HYDROCODONE [Concomitant]
     Active Substance: HYDROCODONE
     Indication: PAIN
     Dosage: 7.5 MG, 4X/DAY (1 TABLET EVERY 6 HOURS)
  11. LUMIGAN [Concomitant]
     Active Substance: BIMATOPROST
     Indication: GLAUCOMA
     Dosage: 2 GTT, DAILY (1 DROP IN EACH EYE DAILY)
     Route: 047
  12. ALPHAGAN P [Concomitant]
     Active Substance: BRIMONIDINE TARTRATE
     Indication: GLAUCOMA
     Dosage: (1 DROP 3 TIMES A DAY IN BOTH EYES)
  13. LISINOPRIL. [Concomitant]
     Active Substance: LISINOPRIL
     Indication: HYPERTENSION
     Dosage: 20 MG, 1X/DAY
  14. PROAIR HFA [Concomitant]
     Active Substance: ALBUTEROL SULFATE
     Indication: ASTHMA
     Dosage: UNK UNK, AS NEEDED

REACTIONS (7)
  - Arthropathy [Not Recovered/Not Resolved]
  - Gait inability [Recovered/Resolved]
  - Drug effect incomplete [Unknown]
  - Peripheral swelling [Recovered/Resolved]
  - Joint swelling [Recovered/Resolved]
  - Gait disturbance [Recovered/Resolved]
  - Somnolence [Recovered/Resolved]

NARRATIVE: CASE EVENT DATE: 20180108
